FAERS Safety Report 16981175 (Version 3)
Quarter: 2019Q4

REPORT INFORMATION
  Report Type: Report from Study
  Country: US (occurrence: US)
  Receive Date: 20191031
  Receipt Date: 20191120
  Transmission Date: 20200122
  Serious: Yes (Hospitalization)
  Sender: FDA-Public Use
  Company Number: US-ACTELION-A-NJ2019-192568

PATIENT
  Sex: Male
  Weight: 146.94 kg

DRUGS (6)
  1. ELIQUIS [Concomitant]
     Active Substance: APIXABAN
  2. AMLODIPINE [Concomitant]
     Active Substance: AMLODIPINE BESYLATE
  3. VELETRI [Suspect]
     Active Substance: EPOPROSTENOL
     Dosage: 12 NG/KG, PER MIN
     Route: 042
  4. VELETRI [Suspect]
     Active Substance: EPOPROSTENOL
     Indication: PULMONARY ARTERIAL HYPERTENSION
     Dosage: 9 NG/KG, PER MIN
     Route: 042
  5. VELETRI [Suspect]
     Active Substance: EPOPROSTENOL
     Dosage: 14 NG/KG, PER MIN
     Route: 042
  6. ORENITRAM [Concomitant]
     Active Substance: TREPROSTINIL

REACTIONS (11)
  - Therapy change [Unknown]
  - Pain in extremity [Unknown]
  - Pain [Unknown]
  - Gout [Unknown]
  - Diarrhoea [Unknown]
  - Depressed mood [Unknown]
  - Pain in jaw [Not Recovered/Not Resolved]
  - Injection site pain [Unknown]
  - Dyspnoea [Unknown]
  - Rash [Unknown]
  - Oral pain [Unknown]
